FAERS Safety Report 20754728 (Version 1)
Quarter: 2022Q2

REPORT INFORMATION
  Report Type: Spontaneous
  Country: SG (occurrence: SG)
  Receive Date: 20220427
  Receipt Date: 20220427
  Transmission Date: 20220721
  Serious: Yes (Hospitalization, Other)
  Sender: FDA-Public Use
  Company Number: SG-BRISTOL-MYERS SQUIBB COMPANY-2022-024364

PATIENT
  Age: 75 Year
  Sex: Female

DRUGS (7)
  1. LUSPATERCEPT [Suspect]
     Active Substance: LUSPATERCEPT
     Indication: Product used for unknown indication
     Route: 065
     Dates: start: 20220217
  2. LUSPATERCEPT [Suspect]
     Active Substance: LUSPATERCEPT
     Route: 065
     Dates: start: 20220317
  3. LUSPATERCEPT [Suspect]
     Active Substance: LUSPATERCEPT
     Route: 065
     Dates: start: 20220407
  4. Deferasir ox [Concomitant]
     Indication: Product used for unknown indication
     Route: 065
  5. PREDNISOLONE [Concomitant]
     Active Substance: PREDNISOLONE
     Indication: Product used for unknown indication
     Route: 065
  6. AMLODIPINE [Concomitant]
     Active Substance: AMLODIPINE BESYLATE
     Indication: Product used for unknown indication
     Route: 065
  7. EPOETIN BETA [Concomitant]
     Active Substance: ERYTHROPOIETIN
     Indication: Product used for unknown indication
     Route: 065

REACTIONS (4)
  - Fall [Unknown]
  - Humerus fracture [Unknown]
  - Periorbital haematoma [Unknown]
  - Subdural haemorrhage [Unknown]

NARRATIVE: CASE EVENT DATE: 20220411
